FAERS Safety Report 24083779 (Version 2)
Quarter: 2024Q3

REPORT INFORMATION
  Report Type: Report from Study
  Country: CL (occurrence: CL)
  Receive Date: 20240712
  Receipt Date: 20240821
  Transmission Date: 20241017
  Serious: Yes (Hospitalization)
  Sender: JOHNSON AND JOHNSON
  Company Number: CL-JNJFOC-20240719861

PATIENT
  Age: 63 Year
  Sex: Male

DRUGS (1)
  1. SIMPONI [Suspect]
     Active Substance: GOLIMUMAB
     Indication: Psoriatic arthropathy
     Route: 058
     Dates: start: 20211222

REACTIONS (3)
  - Intestinal tuberculosis [Unknown]
  - Illness [Unknown]
  - Bone pain [Unknown]

NARRATIVE: CASE EVENT DATE: 20240201
